FAERS Safety Report 9910058 (Version 1)
Quarter: 2014Q1

REPORT INFORMATION
  Report Type: Spontaneous
  Country: US (occurrence: None)
  Receive Date: 20140218
  Receipt Date: 20140218
  Transmission Date: 20141002
  Serious: Yes (Hospitalization)
  Sender: FDA-Public Use
  Company Number: None

PATIENT
  Age: 68 Year
  Sex: Female
  Weight: 117.94 kg

DRUGS (1)
  1. INVOKANA [Suspect]
     Indication: DIABETES MELLITUS
     Route: 048
     Dates: start: 20130806

REACTIONS (6)
  - Pyrexia [None]
  - Dizziness [None]
  - Confusional state [None]
  - Incoherent [None]
  - Asthenia [None]
  - Gait disturbance [None]
